FAERS Safety Report 5081191-9 (Version None)
Quarter: 2006Q3

REPORT INFORMATION
  Report Type: 
  Country: None (occurrence: None)
  Receive Date: 20060816
  Receipt Date: 20060524
  Transmission Date: 20061208
  Serious: Yes (Other)
  Sender: FDA-Public Use
  Company Number: DK-NOVOPROD-253578

PATIENT
  Age: 57 Year
  Sex: Male
  Weight: 102 kg

DRUGS (12)
  1. NOVORAPID FLEXPEN [Suspect]
     Indication: INSULIN-REQUIRING TYPE II DIABETES MELLITUS
     Dosage: 30 U, TID
     Route: 058
     Dates: start: 20030425, end: 20030703
  2. NOVORAPID FLEXPEN [Suspect]
     Dosage: 35 U, TID
     Route: 058
     Dates: start: 20030716
  3. BLINDED [Concomitant]
     Indication: INSULIN-REQUIRING TYPE II DIABETES MELLITUS
     Dosage: 1 TAB, BID
     Route: 048
     Dates: start: 20030425
  4. BLINDED [Concomitant]
     Dosage: 2 TAB, BID
     Route: 048
     Dates: start: 20030425
  5. ZARATOR                            /01326101/ [Concomitant]
     Indication: HYPERLIPIDAEMIA
     Dosage: 20 MG, QD
     Dates: start: 20011126, end: 20050421
  6. MAGNYL                             /00228701/ [Concomitant]
     Indication: THROMBOSIS PROPHYLAXIS
     Dosage: 150 MG, QD
     Dates: start: 20001211, end: 20050728
  7. TRIATEC [Concomitant]
     Indication: HYPERTENSION
     Dosage: 10 MG, QD
     Dates: start: 19960110
  8. CARDIL [Concomitant]
     Indication: HYPERTENSION
     Dosage: 240 MG, QD
     Dates: start: 19850101
  9. FURIX [Concomitant]
     Indication: HYPERTENSION
     Dosage: 120 MG, QD
     Dates: start: 19951019, end: 20050120
  10. POTASSIUM CHLORIDE [Concomitant]
     Indication: MINERAL SUPPLEMENTATION
     Dosage: 2150 MG, QD
     Dates: start: 19951019, end: 20050120
  11. DURA-ZOK [Concomitant]
     Indication: HYPERTENSION
     Dosage: 200 MG, QD
     Dates: start: 19951122
  12. OMNIC [Concomitant]
     Indication: BENIGN PROSTATIC HYPERPLASIA
     Dosage: .8 MG, QD
     Dates: start: 20040101

REACTIONS (1)
  - CHOLANGITIS [None]
